FAERS Safety Report 14804348 (Version 2)
Quarter: 2018Q2

REPORT INFORMATION
  Report Type: Report from Study
  Country: PH (occurrence: PH)
  Receive Date: 20180425
  Receipt Date: 20180515
  Transmission Date: 20180711
  Serious: Yes (Death, Hospitalization, Other)
  Sender: FDA-Public Use
  Company Number: PHHY2018PH072539

PATIENT
  Age: 43 Year
  Sex: Female

DRUGS (1)
  1. GLIVEC [Suspect]
     Active Substance: IMATINIB MESYLATE
     Indication: CHRONIC MYELOID LEUKAEMIA
     Dosage: 400 MG, UNK
     Route: 065
     Dates: start: 20061107

REACTIONS (11)
  - Multifocal micronodular pneumocyte hyperplasia [Unknown]
  - Pneumonia [Unknown]
  - Nausea [Unknown]
  - Depressed level of consciousness [Unknown]
  - Urinary incontinence [Unknown]
  - Vomiting [Unknown]
  - Haemorrhagic stroke [Unknown]
  - Chronic myeloid leukaemia recurrent [Unknown]
  - Death [Fatal]
  - Headache [Unknown]
  - Cytogenetic analysis abnormal [Unknown]

NARRATIVE: CASE EVENT DATE: 20180411
